FAERS Safety Report 7437204-X (Version None)
Quarter: 2011Q2

REPORT INFORMATION
  Report Type: 
  Country: None (occurrence: None)
  Receive Date: 20110426
  Receipt Date: 20110418
  Transmission Date: 20111010
  Serious: Yes (Hospitalization, Other)
  Sender: FDA-Public Use
  Company Number: AT-BRISTOL-MYERS SQUIBB COMPANY-15679830

PATIENT
  Age: 51 Year
  Sex: Female

DRUGS (4)
  1. ABILIFY [Suspect]
     Indication: BIPOLAR DISORDER
     Dosage: INITAIL DOSE 5 MG INC TO 10MG AND INC TO 15MG; RED TO 10MG; AND STOPPED AND RESTARTED
     Route: 048
     Dates: start: 20080701
  2. BIPERIDEN HYDROCHLORIDE TAB [Concomitant]
  3. SERTRALINE [Concomitant]
     Dosage: SERTRALINE WAS INCREASED FROM 50 MG TO 100 MG
  4. LITHIUM [Concomitant]
     Dosage: LITHIUM 675

REACTIONS (3)
  - PARKINSONISM [None]
  - DEPRESSIVE SYMPTOM [None]
  - MANIA [None]
